FAERS Safety Report 6410766-7 (Version None)
Quarter: 2009Q4

REPORT INFORMATION
  Report Type: 
  Country: None (occurrence: None)
  Receive Date: 20091020
  Receipt Date: 20091020
  Transmission Date: 20100525
  Serious: Yes (Hospitalization)
  Sender: FDA-Public Use
  Company Number: None

PATIENT
  Age: 58 Year
  Sex: Female

DRUGS (7)
  1. PHENYTOIN [Suspect]
     Indication: CONVULSION PROPHYLAXIS
     Dosage: 200MG AM/ 300MG PM DAILY PO
     Route: 048
     Dates: start: 20090708, end: 20090801
  2. LABETALOL HCL [Concomitant]
  3. LOTREL [Concomitant]
  4. MULTI-VITAMIN [Concomitant]
  5. CACLIU [Concomitant]
  6. ASPIRIN [Concomitant]
  7. FISH OIL [Concomitant]

REACTIONS (5)
  - ANAEMIA [None]
  - LYMPHOPENIA [None]
  - NEUTROPENIA [None]
  - STEVENS-JOHNSON SYNDROME [None]
  - THROMBOCYTOPENIA [None]
